FAERS Safety Report 6856157-6 (Version None)
Quarter: 2010Q3

REPORT INFORMATION
  Report Type: 
  Country: None (occurrence: None)
  Receive Date: 20100719
  Receipt Date: 20100707
  Transmission Date: 20110219
  Serious: Yes (Hospitalization)
  Sender: FDA-Public Use
  Company Number: PHHY2010JP34044

PATIENT
  Sex: Male
  Weight: 60 kg

DRUGS (11)
  1. DIOVAN [Suspect]
     Indication: HYPERTENSION
     Dosage: 40 MG, QD
     Route: 048
     Dates: start: 20080521, end: 20100511
  2. LASIX [Suspect]
     Dosage: 10 MG DAILY
     Route: 048
     Dates: start: 20090127
  3. TENORMIN [Concomitant]
     Indication: HYPERTENSION
     Dosage: 25 MG
     Route: 048
     Dates: start: 20030611, end: 20100512
  4. ARTIST [Concomitant]
     Indication: HYPERTENSION
     Dosage: 2.5 MG
     Route: 048
     Dates: start: 20100513
  5. MICARDIS [Concomitant]
     Indication: HYPERTENSION
     Dosage: 20 MG
     Route: 048
     Dates: start: 20100513
  6. DEPAS [Concomitant]
     Dosage: 0.5 MG
     Route: 048
  7. DIGOXIN [Concomitant]
     Dosage: 0.125 MG
     Route: 048
  8. WARFARIN SODIUM [Concomitant]
     Dosage: 3 MG
     Route: 048
  9. EPADEL [Concomitant]
     Dosage: 1200 MG
     Route: 048
  10. ZYLORIC [Concomitant]
     Dosage: 200 MG
     Route: 048
  11. CELTECT [Concomitant]
     Dosage: 60 MG
     Route: 048

REACTIONS (2)
  - BLOOD PRESSURE DIASTOLIC DECREASED [None]
  - CARDIAC FAILURE [None]
